FAERS Safety Report 5194510-X (Version None)
Quarter: 2006Q4

REPORT INFORMATION
  Report Type: 
  Country: None (occurrence: None)
  Receive Date: 20061222
  Receipt Date: 20061218
  Transmission Date: 20070319
  Serious: Yes (Hospitalization)
  Sender: FDA-Public Use
  Company Number: CHWYE620722NOV06

PATIENT
  Age: 53 Year
  Sex: Female

DRUGS (5)
  1. EFFEXOR [Suspect]
     Indication: DEPRESSION
     Dosage: 75 + 300 + 150 MG 1X PER 1 DAY ORAL
     Route: 048
     Dates: end: 20060801
  2. EFFEXOR [Suspect]
     Indication: DEPRESSION
     Dosage: 75 + 300 + 150 MG 1X PER 1 DAY ORAL
     Route: 048
     Dates: start: 20060801, end: 20061002
  3. EFFEXOR [Suspect]
     Indication: DEPRESSION
     Dosage: 75 + 300 + 150 MG 1X PER 1 DAY ORAL
     Route: 048
     Dates: start: 20061003
  4. FLURAZEPAM [Concomitant]
  5. CLORAZEPATE DIPOTASSIUM [Concomitant]

REACTIONS (2)
  - ANTIDEPRESSANT DRUG LEVEL BELOW THERAPEUTIC [None]
  - NONSPECIFIC REACTION [None]
